FAERS Safety Report 19860965 (Version 1)
Quarter: 2021Q3

REPORT INFORMATION
  Report Type: Spontaneous
  Country: US (occurrence: US)
  Receive Date: 20210921
  Receipt Date: 20210921
  Transmission Date: 20211014
  Serious: Yes (Other)
  Sender: FDA-Public Use
  Company Number: US-MYLANLABS-2021M1063786

PATIENT
  Age: 14 Year
  Sex: Male

DRUGS (7)
  1. NORMAL SALINE [Concomitant]
     Active Substance: SODIUM CHLORIDE
     Indication: PRODUCT USED FOR UNKNOWN INDICATION
     Dosage: INTRA?ARTERIAL INFUSION; CISPLATIN IN 1 MG/ML D5 1/2 SODIUM CHLORIDE ??.
     Route: 013
  2. DOXORUBICIN [Suspect]
     Active Substance: DOXORUBICIN
     Indication: EMBRYONAL RHABDOMYOSARCOMA
     Dosage: 4.5 MILLIGRAM/SQ. METER, BIWEEKLY, INTRA?ARTERIAL INFUSION; 25 ML D5??
     Route: 013
  3. ETOPOSIDE. [Suspect]
     Active Substance: ETOPOSIDE
     Indication: EMBRYONAL RHABDOMYOSARCOMA
     Dosage: UNK
     Route: 048
  4. MELPHALAN. [Suspect]
     Active Substance: MELPHALAN
     Indication: EMBRYONAL RHABDOMYOSARCOMA
     Dosage: INTRA?ARTERIAL INFUSION; A CATHETER WAS INSERTED THROUGH THE FEMORAL ARTERY AND ??.
     Route: 013
  5. DEXAMETHASONE. [Concomitant]
     Active Substance: DEXAMETHASONE
     Indication: PREMEDICATION
     Dosage: UNK
     Route: 065
  6. ONDANSETRON [Concomitant]
     Active Substance: ONDANSETRON
     Indication: PREMEDICATION
     Dosage: UNK
     Route: 065
  7. CISPLATIN. [Suspect]
     Active Substance: CISPLATIN
     Indication: EMBRYONAL RHABDOMYOSARCOMA
     Dosage: 100 MILLIGRAM/SQ. METER, BIWEEKLY, INTRA?ARTERIAL INFUSION; IN 1 MG/ML??.
     Route: 013

REACTIONS (8)
  - Haematochezia [Unknown]
  - Stomatitis [Unknown]
  - Myelosuppression [Unknown]
  - Mucosal inflammation [Unknown]
  - Arterial disorder [Unknown]
  - Off label use [Unknown]
  - Tinnitus [Unknown]
  - Nasopharyngitis [Unknown]
